FAERS Safety Report 6764517-7 (Version None)
Quarter: 2010Q2

REPORT INFORMATION
  Report Type: 
  Country: None (occurrence: None)
  Receive Date: 20100609
  Receipt Date: 20100331
  Transmission Date: 20101027
  Serious: No
  Sender: FDA-Public Use
  Company Number: 2010007935

PATIENT
  Age: 4 Year
  Sex: Male

DRUGS (1)
  1. CHILDREN'S ZYRTEC ALLERGY [Suspect]
     Indication: EYE PRURITUS
     Dosage: ONE TEASPOON ONCE ORAL
     Route: 048
     Dates: start: 20100331, end: 20100331

REACTIONS (3)
  - ABDOMINAL PAIN UPPER [None]
  - CRYING [None]
  - SCREAMING [None]
